FAERS Safety Report 12617407 (Version 4)
Quarter: 2016Q3

REPORT INFORMATION
  Report Type: Report from Study
  Country: US (occurrence: US)
  Receive Date: 20160803
  Receipt Date: 20160910
  Transmission Date: 20161109
  Serious: No
  Sender: FDA-Public Use
  Company Number: US-AMGEN-USASL2016098475

PATIENT
  Age: 52 Year
  Sex: Female

DRUGS (1)
  1. ENBREL [Suspect]
     Active Substance: ETANERCEPT
     Indication: RHEUMATOID ARTHRITIS
     Dosage: UNK UNK, QWK
     Route: 065
     Dates: start: 20160614, end: 20160719

REACTIONS (9)
  - Headache [Unknown]
  - Rash [Unknown]
  - Irritability [Unknown]
  - Discomfort [Unknown]
  - Pruritus generalised [Unknown]
  - Urticaria [Unknown]
  - Migraine [Unknown]
  - Burning sensation [Unknown]
  - Hypersensitivity [Unknown]

NARRATIVE: CASE EVENT DATE: 2016
